FAERS Safety Report 24060959 (Version 1)
Quarter: 2024Q3

REPORT INFORMATION
  Report Type: Spontaneous
  Country: US (occurrence: US)
  Receive Date: 20240708
  Receipt Date: 20240708
  Transmission Date: 20241017
  Serious: Yes (Life-Threatening, Hospitalization, Other)
  Sender: MYLAN
  Company Number: US-MYLANLABS-2024M1061807

PATIENT
  Age: 50 Year
  Sex: Male

DRUGS (6)
  1. HEPARIN [Suspect]
     Active Substance: HEPARIN SODIUM
     Indication: Anticoagulant therapy
     Dosage: UNK
     Route: 065
  2. HEPARIN [Suspect]
     Active Substance: HEPARIN SODIUM
     Indication: Thrombosis prophylaxis
  3. BIVALIRUDIN [Suspect]
     Active Substance: BIVALIRUDIN
     Indication: Anticoagulant therapy
     Dosage: UNK
     Route: 065
  4. BIVALIRUDIN [Suspect]
     Active Substance: BIVALIRUDIN
     Indication: Thrombosis prophylaxis
  5. CANGRELOR [Suspect]
     Active Substance: CANGRELOR
     Indication: Anticoagulant therapy
     Dosage: UNK
     Route: 065
  6. CANGRELOR [Suspect]
     Active Substance: CANGRELOR
     Indication: Thrombosis prophylaxis

REACTIONS (2)
  - Heparin-induced thrombocytopenia [Unknown]
  - Drug ineffective [Unknown]
